FAERS Safety Report 8361000-2 (Version None)
Quarter: 2012Q2

REPORT INFORMATION
  Report Type: 
  Country: None (occurrence: None)
  Receive Date: 20120515
  Receipt Date: 20120509
  Transmission Date: 20120825
  Serious: Yes (Hospitalization)
  Sender: FDA-Public Use
  Company Number: NL-ROCHE-1067983

PATIENT
  Sex: Female
  Weight: 74.1 kg

DRUGS (5)
  1. VEMURAFENIB [Suspect]
     Indication: MALIGNANT MELANOMA
     Dosage: DATE OF LAST DOSE OF VEMURAFENIB IS ON 08/MAY/2012
     Route: 048
     Dates: start: 20120127
  2. ELECTROLYTES NOS AND POLYETHYLENE GLYCOL [Suspect]
     Indication: PRODUCT USED FOR UNKNOWN INDICATION
     Dosage: 2 EH
     Dates: start: 20120426, end: 20120508
  3. BISACODYL [Suspect]
     Indication: PRODUCT USED FOR UNKNOWN INDICATION
     Dates: start: 20120426, end: 20120508
  4. OXAZEPAM [Concomitant]
  5. PANTOPRAZOLE [Concomitant]

REACTIONS (1)
  - ABDOMINAL PAIN [None]
